FAERS Safety Report 22967330 (Version 2)
Quarter: 2023Q4

REPORT INFORMATION
  Report Type: Spontaneous
  Country: US (occurrence: US)
  Receive Date: 20230921
  Receipt Date: 20231005
  Transmission Date: 20240109
  Serious: Yes (Hospitalization)
  Sender: FDA-Public Use
  Company Number: US-PFIZER INC-202300305695

PATIENT
  Age: 48 Year
  Sex: Male
  Weight: 89.36 kg

DRUGS (6)
  1. BRAFTOVI [Suspect]
     Active Substance: ENCORAFENIB
     Indication: Malignant melanoma
     Dosage: SIX BRAFTOVI 75 MG CAPSULES ONCE A DAY
     Dates: start: 202207, end: 2022
  2. BRAFTOVI [Suspect]
     Active Substance: ENCORAFENIB
     Dosage: 4 BRAFTOVI 75 MG CAPSULES ONCE A DAY
     Dates: start: 2022, end: 202301
  3. BRAFTOVI [Suspect]
     Active Substance: ENCORAFENIB
     Dosage: TWO 75 MG CAPSULES ONCE A DAY
     Route: 048
     Dates: start: 2023
  4. MEKTOVI [Suspect]
     Active Substance: BINIMETINIB
     Indication: Malignant melanoma
     Dosage: 2 MEKTOVI 15 MG TABLETS TWICE A DAY
     Dates: start: 202207, end: 2022
  5. MEKTOVI [Suspect]
     Active Substance: BINIMETINIB
     Dosage: ONE MEKTOVI 15 MG TABLET TWICE A DAY
     Dates: start: 2022, end: 202301
  6. MEKTOVI [Suspect]
     Active Substance: BINIMETINIB
     Dosage: ONE 15 MG TABLET ONCE A DAY
     Route: 048
     Dates: start: 2023

REACTIONS (4)
  - Pyrexia [Unknown]
  - Neoplasm progression [Unknown]
  - Off label use [Unknown]
  - Off label use [Unknown]

NARRATIVE: CASE EVENT DATE: 20220101
